FAERS Safety Report 23580653 (Version 2)
Quarter: 2024Q1

REPORT INFORMATION
  Report Type: Report from Study
  Country: CA (occurrence: CA)
  Receive Date: 20240229
  Receipt Date: 20240321
  Transmission Date: 20240409
  Serious: Yes (Other)
  Sender: FDA-Public Use
  Company Number: CA-TEVA-VS-3142208

PATIENT
  Age: 61 Year
  Sex: Male

DRUGS (10)
  1. CINQAIR [Suspect]
     Active Substance: RESLIZUMAB
     Indication: Asthma
     Dosage: LAST INFUSION DATE: 2024-02-12
     Route: 042
     Dates: start: 20210611
  2. VENTOLIN [Concomitant]
     Active Substance: ALBUTEROL SULFATE
  3. Incruse inhaler [Concomitant]
  4. SYMBICORT [Concomitant]
     Active Substance: BUDESONIDE\FORMOTEROL FUMARATE DIHYDRATE
  5. AZITHROMYCIN [Concomitant]
     Active Substance: AZITHROMYCIN
  6. VITAMINS [Concomitant]
     Active Substance: VITAMINS
  7. FISH OIL [Concomitant]
     Active Substance: FISH OIL
  8. VITAMIN C [Concomitant]
     Active Substance: ASCORBIC ACID
  9. VITAMIN D [Concomitant]
     Active Substance: VITAMIN D NOS
  10. Covid vaccine [Concomitant]
     Dates: start: 20210604

REACTIONS (4)
  - Lower respiratory tract infection [Recovering/Resolving]
  - Herpes zoster [Recovering/Resolving]
  - Pneumonia [Recovering/Resolving]
  - Cough [Recovering/Resolving]

NARRATIVE: CASE EVENT DATE: 20231201
